FAERS Safety Report 7541525-X (Version None)
Quarter: 2011Q2

REPORT INFORMATION
  Report Type: 
  Country: None (occurrence: None)
  Receive Date: 20110613
  Receipt Date: 20110531
  Transmission Date: 20111010
  Serious: Yes (Hospitalization, Other)
  Sender: FDA-Public Use
  Company Number: CN-BRISTOL-MYERS SQUIBB COMPANY-15793094

PATIENT
  Age: 45 Year
  Sex: Male

DRUGS (4)
  1. GEMCITABINE [Suspect]
     Indication: LUNG SQUAMOUS CELL CARCINOMA STAGE UNSPECIFIED
     Dosage: 1DF:1000MG/M
     Route: 042
  2. ONDANSETRON [Concomitant]
     Indication: PROPHYLAXIS
  3. CISPLATIN [Suspect]
     Indication: LUNG SQUAMOUS CELL CARCINOMA STAGE UNSPECIFIED
     Dosage: 1DF:75MG/M
     Route: 042
  4. METOCLOPRAMIDE [Concomitant]
     Indication: PROPHYLAXIS

REACTIONS (3)
  - THROMBOCYTOPENIA [None]
  - NEUTROPENIA [None]
  - MYELOPATHY [None]
